FAERS Safety Report 19443937 (Version 1)
Quarter: 2021Q2

REPORT INFORMATION
  Report Type: Spontaneous
  Country: JP (occurrence: JP)
  Receive Date: 20210621
  Receipt Date: 20210621
  Transmission Date: 20210717
  Serious: Yes (Life-Threatening, Hospitalization, Other)
  Sender: FDA-Public Use
  Company Number: JP-ELI_LILLY_AND_COMPANY-JP202106008859

PATIENT
  Age: 82 Year
  Sex: Male
  Weight: 70 kg

DRUGS (14)
  1. LYRICA [Concomitant]
     Active Substance: PREGABALIN
     Dosage: 75 MG, BID
     Route: 048
     Dates: end: 20210528
  2. TOARASET [Concomitant]
     Active Substance: ACETAMINOPHEN\TRAMADOL HYDROCHLORIDE
     Dosage: 1 DOSAGE FORM, TID
     Route: 048
     Dates: end: 20210528
  3. SYMPROIC [Concomitant]
     Active Substance: NALDEMEDINE
     Dosage: 0.2 MG, DAILY
     Route: 048
     Dates: end: 20210528
  4. TAKECAB [Concomitant]
     Active Substance: VONOPRAZAN FUMARATE
     Dosage: 20 MG, DAILY
     Route: 048
  5. MAALOX ADVANCED [ALUMINIUM HYDROXIDE;MAGNESIU [Concomitant]
     Dosage: 1.2 G, TID
     Route: 048
     Dates: end: 20210528
  6. ALPHAGAN P [Concomitant]
     Active Substance: BRIMONIDINE TARTRATE
     Dosage: UNK, BID
     Route: 047
     Dates: end: 20210528
  7. BAKTAR [Suspect]
     Active Substance: SULFAMETHOXAZOLE\TRIMETHOPRIM
     Indication: POSTOPERATIVE WOUND INFECTION
     Dosage: 2 DOSAGE FORM, BID
     Route: 048
     Dates: start: 20210202, end: 20210528
  8. PITAVASTATIN. [Concomitant]
     Active Substance: PITAVASTATIN CALCIUM
     Dosage: 1 MG, DAILY
     Route: 048
     Dates: end: 20210528
  9. BIMATOPROST. [Concomitant]
     Active Substance: BIMATOPROST
     Dosage: 2.5 ML, DAILY
     Route: 047
     Dates: end: 20210528
  10. MAGMITT [Concomitant]
     Active Substance: MAGNESIUM OXIDE
     Dosage: 330 MG, TID
     Route: 048
     Dates: end: 20210528
  11. DULOXETINE HYDROCHLORIDE. [Suspect]
     Active Substance: DULOXETINE HYDROCHLORIDE
     Indication: PRODUCT USED FOR UNKNOWN INDICATION
     Dosage: 20 MG, DAILY
     Route: 048
     Dates: end: 20210528
  12. TOARASET [Concomitant]
     Active Substance: ACETAMINOPHEN\TRAMADOL HYDROCHLORIDE
     Dosage: UNK
     Route: 048
     Dates: start: 20210604
  13. AZULENE [Concomitant]
     Active Substance: AZULENE
     Dosage: 20 G
     Route: 062
     Dates: end: 20210528
  14. DORMOLOL [Concomitant]
     Dosage: 10 ML, BID
     Route: 047
     Dates: end: 20210528

REACTIONS (6)
  - Postoperative wound infection [Unknown]
  - Duodenal ulcer [Unknown]
  - Spinal compression fracture [Unknown]
  - Gastrooesophageal reflux disease [Unknown]
  - Pneumonia [Unknown]
  - Pancytopenia [Recovering/Resolving]

NARRATIVE: CASE EVENT DATE: 20210528
